FAERS Safety Report 17622061 (Version 2)
Quarter: 2020Q2

REPORT INFORMATION
  Report Type: Spontaneous
  Country: US (occurrence: US)
  Receive Date: 20200403
  Receipt Date: 20200409
  Transmission Date: 20200713
  Serious: Yes (Other)
  Sender: FDA-Public Use
  Company Number: US-PFIZER INC-2020139414

PATIENT
  Age: 31 Year
  Sex: Male
  Weight: 102 kg

DRUGS (3)
  1. DURABOLIN [Concomitant]
     Active Substance: NANDROLONE PHENPROPIONATE
     Indication: MUSCLE BUILDING THERAPY
     Dosage: UNK (FOR 8 YR)
  2. TESTOSTERONE CIPIONATE [Suspect]
     Active Substance: TESTOSTERONE
     Indication: MUSCLE BUILDING THERAPY
     Dosage: UNK (FOR 8 YR)
  3. STANZOL [Concomitant]
     Indication: MUSCLE BUILDING THERAPY
     Dosage: UNK (FOR 8 YR)

REACTIONS (2)
  - Focal segmental glomerulosclerosis [Unknown]
  - Drug abuse [Unknown]
